FAERS Safety Report 4426838-2 (Version None)
Quarter: 2004Q3

REPORT INFORMATION
  Report Type: 
  Country: None (occurrence: None)
  Receive Date: 20040816
  Receipt Date: 20040805
  Transmission Date: 20050211
  Serious: Yes (Other)
  Sender: FDA-Public Use
  Company Number: AU-GLAXOSMITHKLINE-B0342217A

PATIENT
  Sex: Female

DRUGS (1)
  1. ZYBAN [Suspect]
     Indication: DRUG USE FOR UNKNOWN INDICATION
     Dates: start: 20040701

REACTIONS (13)
  - ANKYLOGLOSSIA CONGENITAL [None]
  - ANOREXIA [None]
  - DIZZINESS [None]
  - FLATULENCE [None]
  - MIDDLE INSOMNIA [None]
  - READING DISORDER [None]
  - SLEEP DISORDER [None]
  - SOMNOLENCE [None]
  - THOUGHT BLOCKING [None]
  - TREMOR [None]
  - URTICARIA [None]
  - VISUAL ACUITY REDUCED [None]
  - VISUAL DISTURBANCE [None]
